FAERS Safety Report 4775956-8 (Version None)
Quarter: 2005Q3

REPORT INFORMATION
  Report Type: 
  Country: None (occurrence: None)
  Receive Date: 20050922
  Receipt Date: 20050914
  Transmission Date: 20060218
  Serious: Yes (Life-Threatening, Hospitalization)
  Sender: FDA-Public Use
  Company Number: GB-GLAXOSMITHKLINE-B0394033A

PATIENT
  Age: 4 Year
  Sex: Female
  Weight: 27.3 kg

DRUGS (5)
  1. ONDANSETRON [Suspect]
     Indication: EAR TUBE INSERTION
     Route: 042
     Dates: start: 20050101, end: 20050101
  2. CODEINE [Suspect]
     Indication: EAR TUBE INSERTION
     Route: 065
     Dates: start: 20050101, end: 20050101
  3. PROPOFOL [Concomitant]
     Route: 065
  4. VOLTAROL [Concomitant]
     Route: 065
  5. PARACETAMOL [Concomitant]
     Route: 065

REACTIONS (3)
  - CYANOSIS [None]
  - HYPOTENSION [None]
  - URTICARIA [None]
